FAERS Safety Report 7069180 (Version 2)
Quarter: 2014Q1

REPORT INFORMATION
  Report Type: Spontaneous
  Country: US (occurrence: None)
  Receive Date: 20090724
  Receipt Date: 20140219
  Transmission Date: 20141002
  Serious: Yes (Other)
  Sender: FDA-Public Use
  Company Number: 2009S1005539

PATIENT
  Age: 59 Year
  Sex: Female

DRUGS (1)
  1. FLEET PHOSPHO-SODA ORAL SALINE LAXATIVE, GINGER-LEMON FLAVOR (ORAL SOLUTION) [Suspect]
     Indication: COLONOSCOPY
     Dates: start: 20031218, end: 20031218

REACTIONS (2)
  - Renal failure [None]
  - Renal transplant [None]
